FAERS Safety Report 19548966 (Version 1)
Quarter: 2021Q3

REPORT INFORMATION
  Report Type: Spontaneous
  Country: US (occurrence: US)
  Receive Date: 20210715
  Receipt Date: 20210715
  Transmission Date: 20211014
  Serious: Yes (Death)
  Sender: FDA-Public Use
  Company Number: None

PATIENT
  Age: 79 Year
  Sex: Male
  Weight: 90 kg

DRUGS (1)
  1. OFEV [Suspect]
     Active Substance: NINTEDANIB
     Indication: TRAUMATIC LUNG INJURY
     Dosage: ?          QUANTITY:60 CAPSULE(S);?
     Route: 048

REACTIONS (4)
  - Diarrhoea [None]
  - Muscular weakness [None]
  - Hallucination [None]
  - Renal failure [None]

NARRATIVE: CASE EVENT DATE: 20210501
